FAERS Safety Report 8584037-7 (Version None)
Quarter: 2012Q3

REPORT INFORMATION
  Report Type: 
  Country: None (occurrence: None)
  Receive Date: 20120810
  Receipt Date: 20120730
  Transmission Date: 20120928
  Serious: No
  Sender: FDA-Public Use
  Company Number: US-009507513-1207USA013100

PATIENT

DRUGS (1)
  1. DULERA [Suspect]
     Indication: RESPIRATORY DISORDER
     Dosage: UNK
     Route: 055
     Dates: start: 20110701

REACTIONS (6)
  - DRUG DOSE OMISSION [None]
  - GLAUCOMA [None]
  - PULMONARY FUNCTION TEST DECREASED [None]
  - PRODUCT QUALITY ISSUE [None]
  - OSTEOPOROSIS [None]
  - RESPIRATORY DISORDER [None]
